FAERS Safety Report 17888824 (Version 1)
Quarter: 2020Q2

REPORT INFORMATION
  Report Type: Spontaneous
  Country: FR (occurrence: FR)
  Receive Date: 20200612
  Receipt Date: 20200612
  Transmission Date: 20200714
  Serious: Yes (Other)
  Sender: FDA-Public Use
  Company Number: FR-ENDO PHARMACEUTICALS INC-2020-004268

PATIENT

DRUGS (3)
  1. DISULFIRAM. [Suspect]
     Active Substance: DISULFIRAM
     Indication: LYME DISEASE
     Dosage: 250 MG, UNKNOWN PER DAY X 2WK
     Route: 065
  2. DISULFIRAM. [Suspect]
     Active Substance: DISULFIRAM
     Dosage: 750 MG, UNKNOWN PER DAY X 2 WEEKS
     Route: 065
  3. DISULFIRAM. [Suspect]
     Active Substance: DISULFIRAM
     Dosage: 500 MG, UNKNOWN PER DAY X 7 WEEKS
     Route: 065

REACTIONS (6)
  - Insomnia [Unknown]
  - Pain [Unknown]
  - Fatigue [Unknown]
  - Delirium [Unknown]
  - Tachycardia [Unknown]
  - Off label use [Recovered/Resolved]
